FAERS Safety Report 7261028-X (Version None)
Quarter: 2011Q1

REPORT INFORMATION
  Report Type: 
  Country: None (occurrence: None)
  Receive Date: 20110130
  Receipt Date: 20101217
  Transmission Date: 20110831
  Serious: No
  Sender: FDA-Public Use
  Company Number: US-ABBOTT-10P-163-0687429-00

PATIENT
  Sex: Female
  Weight: 89.892 kg

DRUGS (2)
  1. HUMIRA [Suspect]
     Indication: PSORIATIC ARTHROPATHY
  2. HUMIRA [Suspect]
     Indication: PSORIASIS
     Dates: start: 20100924

REACTIONS (2)
  - WRONG TECHNIQUE IN DRUG USAGE PROCESS [None]
  - INJURY ASSOCIATED WITH DEVICE [None]
